FAERS Safety Report 9917245 (Version 2)
Quarter: 2014Q1

REPORT INFORMATION
  Report Type: Spontaneous
  Country: DK (occurrence: FR)
  Receive Date: 20140221
  Receipt Date: 20140305
  Transmission Date: 20141002
  Serious: Yes (Hospitalization)
  Sender: FDA-Public Use
  Company Number: FR-FRI-1000054454

PATIENT
  Age: 83 Year
  Sex: Female

DRUGS (2)
  1. ESCITALOPRAM [Suspect]
     Indication: DEPRESSION
     Dosage: 10 MG
     Route: 048
     Dates: start: 20140102
  2. IMOVANE [Concomitant]
     Indication: INSOMNIA
     Route: 048
     Dates: start: 20140123

REACTIONS (2)
  - Hyponatraemia [Recovering/Resolving]
  - Hypochloraemia [Recovering/Resolving]
